FAERS Safety Report 9132120 (Version 1)
Quarter: 2013Q1

REPORT INFORMATION
  Report Type: Spontaneous
  Country: GB (occurrence: GB)
  Receive Date: 20130107
  Receipt Date: 20130107
  Transmission Date: 20140127
  Serious: Yes (Hospitalization)
  Sender: FDA-Public Use
  Company Number: GB-TEVA-378525ISR

PATIENT
  Sex: Female

DRUGS (11)
  1. FLUCONAZOLE [Suspect]
     Indication: ORAL CANDIDIASIS
     Route: 048
     Dates: start: 20110429, end: 20110504
  2. CEFACLOR [Suspect]
     Route: 048
     Dates: start: 20110408, end: 20110415
  3. AMOXICILLIN [Suspect]
     Route: 048
     Dates: start: 20110328, end: 20110404
  4. AMOXICILLIN [Suspect]
     Route: 048
     Dates: start: 20110209, end: 20110216
  5. ERTAPENEM [Suspect]
     Indication: INTESTINAL PERFORATION
     Route: 042
     Dates: start: 20110424, end: 20110505
  6. LACTULOSE [Concomitant]
     Route: 048
  7. ALVERINE [Concomitant]
     Route: 048
  8. ASPIRIN [Concomitant]
     Dosage: IN THE MORNING
     Route: 048
  9. LERCANIDIPINE [Concomitant]
     Dosage: IN THE MORNING
     Route: 048
  10. SIMVASTATIN [Concomitant]
     Dosage: AT NIGHT
     Route: 048
  11. HYOSCINE BUTYLBROMIDE [Concomitant]
     Route: 048
     Dates: start: 20110310

REACTIONS (3)
  - Clostridium difficile infection [Recovered/Resolved]
  - Diarrhoea [Recovered/Resolved]
  - White blood cell count increased [Recovered/Resolved]
